FAERS Safety Report 9868682 (Version 2)
Quarter: 2014Q2

REPORT INFORMATION
  Report Type: Report from Study
  Country: JP (occurrence: JP)
  Receive Date: 20140204
  Receipt Date: 20140422
  Transmission Date: 20141212
  Serious: Yes (Hospitalization)
  Sender: FDA-Public Use
  Company Number: JP-ABBVIE-14P-087-1195833-00

PATIENT
  Age: 49 Year
  Sex: Female
  Weight: 52 kg

DRUGS (15)
  1. HUMIRA [Suspect]
     Indication: BEHCET^S SYNDROME
     Route: 058
     Dates: start: 20130805, end: 20130805
  2. HUMIRA [Suspect]
     Dates: start: 20130819, end: 20130819
  3. HUMIRA [Suspect]
     Dates: start: 20130902
  4. COLCHICINE [Concomitant]
     Indication: BEHCET^S SYNDROME
     Route: 048
  5. AZATHIOPRINE [Concomitant]
     Indication: BEHCET^S SYNDROME
     Route: 048
  6. ESOMEPRAZOLE MAGNESIUM [Concomitant]
     Indication: PROPHYLAXIS
     Route: 048
  7. DIMETICONE [Concomitant]
     Indication: PRODUCT USED FOR UNKNOWN INDICATION
     Route: 048
  8. MOSAPRIDE CITRATE [Concomitant]
     Indication: PRODUCT USED FOR UNKNOWN INDICATION
     Route: 048
  9. MAGNESIUM OXIDE [Concomitant]
     Indication: PRODUCT USED FOR UNKNOWN INDICATION
     Route: 048
  10. PANTETHINE [Concomitant]
     Indication: PRODUCT USED FOR UNKNOWN INDICATION
     Route: 048
  11. SENNOSIDE [Concomitant]
     Indication: PRODUCT USED FOR UNKNOWN INDICATION
     Route: 048
  12. TRIMEBUTINE MALEATE [Concomitant]
     Indication: PRODUCT USED FOR UNKNOWN INDICATION
     Route: 048
  13. SODIUM FERROUS CITRATE [Concomitant]
     Indication: PRODUCT USED FOR UNKNOWN INDICATION
     Route: 048
     Dates: end: 20130901
  14. RACOL [Concomitant]
     Indication: BEHCET^S SYNDROME
     Route: 048
     Dates: end: 20130921
  15. LOXOPROFEN SODIUM [Concomitant]
     Indication: BEHCET^S SYNDROME
     Route: 048

REACTIONS (1)
  - Renal failure acute [Recovered/Resolved]
